FAERS Safety Report 5199601-5 (Version None)
Quarter: 2007Q1

REPORT INFORMATION
  Report Type: 
  Country: None (occurrence: None)
  Receive Date: 20070103
  Receipt Date: 20070103
  Transmission Date: 20070707
  Serious: Yes (Other)
  Sender: FDA-Public Use
  Company Number: None

PATIENT
  Age: 46 Year
  Sex: Female
  Weight: 52.6173 kg

DRUGS (1)
  1. VERSED [Suspect]
     Indication: SURGERY
     Dosage: IV
     Route: 042

REACTIONS (2)
  - AMNESIA [None]
  - ILL-DEFINED DISORDER [None]
